FAERS Safety Report 6335629-7 (Version None)
Quarter: 2009Q3

REPORT INFORMATION
  Report Type: 
  Country: None (occurrence: None)
  Receive Date: 20090826
  Receipt Date: 20090817
  Transmission Date: 20100115
  Serious: Yes (Other)
  Sender: FDA-Public Use
  Company Number: GXKR2009TW09297

PATIENT
  Age: 67 Year
  Sex: Female

DRUGS (6)
  1. CAPTOPRIL             (CAPTOPRIL) UNKNOWN [Suspect]
     Indication: HYPERTENSION
     Dosage: 6.25 MG, TID, 25 MG
  2. LEVODOPA-CARBIDOPA          (CARBIDOPA, LEVODOPA) [Concomitant]
  3. PERGOLIDE MESYLATE [Concomitant]
  4. ENTACAPONE (ENTACAPONE) [Concomitant]
  5. SELEGILINE HCL [Concomitant]
  6. AMANTADINE HCL [Concomitant]

REACTIONS (2)
  - CONDITION AGGRAVATED [None]
  - PARKINSON'S DISEASE [None]
